FAERS Safety Report 25938952 (Version 2)
Quarter: 2025Q4

REPORT INFORMATION
  Report Type: Report from Study
  Country: CA (occurrence: CA)
  Receive Date: 20251019
  Receipt Date: 20251023
  Transmission Date: 20260118
  Serious: Yes (Hospitalization, Other)
  Sender: ABBVIE
  Company Number: CA-ABBVIE-6507094

PATIENT
  Age: 64 Year
  Sex: Female

DRUGS (8)
  1. RINVOQ [Suspect]
     Active Substance: UPADACITINIB
     Indication: Rheumatoid arthritis
     Route: 048
     Dates: start: 20241020
  2. CLONAZEPAM [Concomitant]
     Active Substance: CLONAZEPAM
     Indication: Product used for unknown indication
     Dosage: AS NEEDED
     Route: 065
  3. ESCITALOPRAM [Concomitant]
     Active Substance: ESCITALOPRAM OXALATE
     Indication: Product used for unknown indication
     Dosage: AS NEEDED
     Route: 065
  4. PANTOPRAZOLE [Concomitant]
     Active Substance: PANTOPRAZOLE
     Indication: Product used for unknown indication
     Dosage: AS NEEDED
     Route: 065
  5. ROSUVASTATIN [Concomitant]
     Active Substance: ROSUVASTATIN
     Indication: Product used for unknown indication
     Dosage: AS NEEDED
     Route: 065
  6. TRAMADOL [Concomitant]
     Active Substance: TRAMADOL
     Indication: Product used for unknown indication
     Dosage: AS NEEDED
     Route: 065
  7. ZOPICLONE [Concomitant]
     Active Substance: ZOPICLONE
     Indication: Product used for unknown indication
     Dosage: AS NEEDED
     Route: 065
  8. VILAZODONE [Concomitant]
     Active Substance: VILAZODONE
     Indication: Product used for unknown indication
     Dosage: AS NEEDED
     Route: 065

REACTIONS (12)
  - Diverticulitis [Unknown]
  - Thrombosis prophylaxis [Unknown]
  - Diverticulitis intestinal perforated [Unknown]
  - Abdominal pain lower [Unknown]
  - Abdominal distension [Unknown]
  - Headache [Unknown]
  - Diarrhoea [Unknown]
  - Peritonitis [Unknown]
  - Abdominal rebound tenderness [Unknown]
  - Nausea [Unknown]
  - Blood urine present [Unknown]
  - C-reactive protein decreased [Unknown]

NARRATIVE: CASE EVENT DATE: 20251003
